FAERS Safety Report 10465834 (Version 27)
Quarter: 2017Q1

REPORT INFORMATION
  Report Type: Report from Study
  Country: CA (occurrence: CA)
  Receive Date: 20140921
  Receipt Date: 20170116
  Transmission Date: 20170428
  Serious: Yes (Other)
  Sender: FDA-Public Use
  Company Number: CA-ROCHE-1447932

PATIENT
  Age: 54 Year
  Sex: Female

DRUGS (11)
  1. ACTEMRA [Suspect]
     Active Substance: TOCILIZUMAB
     Route: 042
     Dates: start: 20150114
  2. FOLIC ACID. [Concomitant]
     Active Substance: FOLIC ACID
  3. ACTEMRA [Suspect]
     Active Substance: TOCILIZUMAB
     Route: 042
     Dates: start: 20150609
  4. VITAMIN B12 [Concomitant]
     Active Substance: CYANOCOBALAMIN
  5. ACTEMRA [Suspect]
     Active Substance: TOCILIZUMAB
     Route: 042
     Dates: start: 20141203
  6. PLAQUENIL [Concomitant]
     Active Substance: HYDROXYCHLOROQUINE SULFATE
  7. METHOTREXATE. [Concomitant]
     Active Substance: METHOTREXATE
  8. BIOTIN [Concomitant]
     Active Substance: BIOTIN
  9. ACTEMRA [Suspect]
     Active Substance: TOCILIZUMAB
     Indication: RHEUMATOID ARTHRITIS
     Route: 042
     Dates: start: 20140618
  10. ALEVE [Concomitant]
     Active Substance: NAPROXEN SODIUM
     Indication: INFLAMMATION
  11. VITAMIN D3 [Concomitant]
     Active Substance: CHOLECALCIFEROL

REACTIONS (32)
  - Tendon disorder [Unknown]
  - Oxygen saturation decreased [Unknown]
  - Psoriasis [Not Recovered/Not Resolved]
  - Abdominal pain [Unknown]
  - Drug effect incomplete [Not Recovered/Not Resolved]
  - Sinus congestion [Unknown]
  - Rheumatoid arthritis [Unknown]
  - Arthralgia [Unknown]
  - Carpal tunnel syndrome [Recovered/Resolved]
  - Hypotension [Unknown]
  - Pain [Not Recovered/Not Resolved]
  - Nasopharyngitis [Recovered/Resolved]
  - Pancreatitis [Unknown]
  - Oropharyngeal pain [Recovered/Resolved]
  - Sinusitis [Not Recovered/Not Resolved]
  - Hand-foot-and-mouth disease [Unknown]
  - Dyspnoea [Not Recovered/Not Resolved]
  - Stress [Unknown]
  - Infusion related reaction [Unknown]
  - Pharyngitis streptococcal [Not Recovered/Not Resolved]
  - Sinusitis [Recovered/Resolved]
  - Gastroenteritis viral [Recovered/Resolved]
  - Nasopharyngitis [Recovering/Resolving]
  - Blood pressure diastolic decreased [Unknown]
  - Pneumonia [Unknown]
  - Oxygen saturation decreased [Unknown]
  - Arthritis [Not Recovered/Not Resolved]
  - Tooth infection [Recovered/Resolved]
  - Myalgia [Unknown]
  - Cough [Not Recovered/Not Resolved]
  - Lower respiratory tract congestion [Unknown]
  - Cough [Unknown]

NARRATIVE: CASE EVENT DATE: 201407
